FAERS Safety Report 10013007 (Version 1)
Quarter: 2014Q1

REPORT INFORMATION
  Report Type: Spontaneous
  Country: US (occurrence: US)
  Receive Date: 20140314
  Receipt Date: 20140314
  Transmission Date: 20141002
  Serious: No
  Sender: FDA-Public Use
  Company Number: US-ASTRAZENECA-2013SE68548

PATIENT
  Age: 30 Year
  Sex: Female
  Weight: 49.4 kg

DRUGS (6)
  1. ZOMIG ZMT [Suspect]
     Indication: MIGRAINE
     Route: 048
     Dates: start: 201306
  2. TOPIRAMATE [Concomitant]
  3. EFFEXOR [Concomitant]
  4. CLONAZEPAM [Concomitant]
  5. NAPROXEN [Concomitant]
  6. HYDROCODONE APAP [Concomitant]

REACTIONS (2)
  - Migraine [Unknown]
  - Drug dose omission [Unknown]
